FAERS Safety Report 20690131 (Version 1)
Quarter: 2022Q2

REPORT INFORMATION
  Report Type: Spontaneous
  Country: US (occurrence: None)
  Receive Date: 20220407
  Receipt Date: 20220407
  Transmission Date: 20220721
  Serious: Yes (Disabling)
  Sender: FDA-Public Use
  Company Number: None

PATIENT
  Age: 66 Year
  Sex: Male
  Weight: 83.91 kg

DRUGS (2)
  1. SUAVE 24 HOUR FRESH ANTIPERSPIRANT [Suspect]
     Active Substance: ALUMINUM CHLOROHYDRATE
     Indication: Personal hygiene
     Dosage: FREQUENCY : DAILY;?OTHER ROUTE : SPRAYED ON SKIN;?
     Route: 050
     Dates: start: 20220326, end: 20220327
  2. ZYRTEC [Concomitant]
     Active Substance: CETIRIZINE HYDROCHLORIDE

REACTIONS (3)
  - Application site swelling [None]
  - Recalled product administered [None]
  - Product contamination chemical [None]

NARRATIVE: CASE EVENT DATE: 20220327
